FAERS Safety Report 8311987-9 (Version None)
Quarter: 2012Q1

REPORT INFORMATION
  Report Type: 
  Country: None (occurrence: None)
  Receive Date: 20120315
  Receipt Date: 20110322
  Transmission Date: 20120608
  Serious: Yes (Other)
  Sender: FDA-Public Use
  Company Number: PHHY2011US20106

PATIENT
  Age: 51 Year
  Sex: Female

DRUGS (5)
  1. PROZAC [Concomitant]
  2. MULTIVITAMIN [Concomitant]
  3. XANAX [Concomitant]
  4. GILENYA [Suspect]
     Indication: MULTIPLE SCLEROSIS
     Dosage: 0.5 MG, QD, ORAL
     Route: 048
     Dates: start: 20110215
  5. APROL (NAPROXEN SODIUM) [Concomitant]

REACTIONS (2)
  - MULTIPLE SCLEROSIS [None]
  - TREMOR [None]
